FAERS Safety Report 10404455 (Version 1)
Quarter: 2014Q2

REPORT INFORMATION
  Report Type: Spontaneous
  Country: US (occurrence: None)
  Receive Date: 20140425
  Receipt Date: 20140425
  Transmission Date: 20141212
  Serious: No
  Sender: FDA-Public Use
  Company Number: 2013SGN00230

PATIENT
  Age: 60 Year
  Sex: Female

DRUGS (10)
  1. ADCETRIS (BRENTUXIMAB VEDOTIN) INJECTION [Suspect]
     Indication: HODGKIN^S DISEASE NODULAR SCLEROSIS
     Dosage: 97 MG, Q21D, INTRAVENOUS
     Route: 042
     Dates: start: 20121114, end: 20130807
  2. ZOLOFT (SERTRALINE HYDROCHLORIDE) [Concomitant]
  3. MULTIVITAMIN (VITAMINS NOS) [Concomitant]
  4. NEXIUM (ESOMEPRAZOLE MAGNESIUM) [Concomitant]
  5. CALCIUM (CALCIUM GLUBIONATE) [Concomitant]
  6. PREDNISONE (PREDNISONE ACETATE) [Concomitant]
  7. NEXIUM (ESOMEPRAZOLE MAGNESIUM) [Concomitant]
  8. CALCIUM (CALCIUM GLUBIONATE) [Concomitant]
  9. PREDNISONE (PREDNISONE ACETATE) [Concomitant]
  10. MARINOL (DRONABINOL) [Concomitant]

REACTIONS (5)
  - Weight gain poor [None]
  - Dry skin [None]
  - Peripheral sensory neuropathy [None]
  - Neuropathy peripheral [None]
  - Hodgkin^s disease [None]
